FAERS Safety Report 5507744-9 (Version None)
Quarter: 2007Q4

REPORT INFORMATION
  Report Type: 
  Country: None (occurrence: None)
  Receive Date: 20071105
  Receipt Date: 20071105
  Transmission Date: 20080405
  Serious: Yes (Hospitalization)
  Sender: FDA-Public Use
  Company Number: None

PATIENT
  Age: 58 Year
  Sex: Male
  Weight: 117.9352 kg

DRUGS (2)
  1. TAXOTERE [Suspect]
     Indication: PROSTATE CANCER
     Dosage: 110 MG IV Q 21 DAYS
     Route: 042
  2. KETOCONAZOLE [Suspect]
     Indication: PROSTATE CANCER
     Dosage: 400 MG PO BID
     Route: 048

REACTIONS (6)
  - ANGINA PECTORIS [None]
  - IRON DEFICIENCY ANAEMIA [None]
  - LOBAR PNEUMONIA [None]
  - METABOLIC ACIDOSIS [None]
  - RENAL FAILURE ACUTE [None]
  - TYPE 2 DIABETES MELLITUS [None]
